FAERS Safety Report 4307414-9 (Version None)
Quarter: 2004Q1

REPORT INFORMATION
  Report Type: 
  Country: None (occurrence: None)
  Receive Date: 20040226
  Receipt Date: 20040219
  Transmission Date: 20041129
  Serious: Yes (Hospitalization)
  Sender: FDA-Public Use
  Company Number: 200410862BCC

PATIENT
  Age: 15 Year

DRUGS (4)
  1. ALEVE TABLET 220MG FROM BAYER CONSUMER CARE (NAPROXEN SODIUM) [Suspect]
     Dosage: 2640 MG, ONCE, ORAL
     Route: 048
     Dates: start: 20040218
  2. WELLBUTRIN [Suspect]
     Dosage: 3750 MG, ONCE, ORAL
     Route: 048
     Dates: start: 20040218
  3. RISPERDAL [Suspect]
     Dosage: 12.5 MG, ONCE, ORAL
     Route: 048
     Dates: start: 20040218
  4. PERCOCET [Suspect]
     Dosage: ONCE, ORAL
     Route: 048
     Dates: start: 20040218

REACTIONS (9)
  - COMA [None]
  - CONVULSION [None]
  - ELECTROCARDIOGRAM QT PROLONGED [None]
  - INTENTIONAL OVERDOSE [None]
  - INTERNATIONAL NORMALISED RATIO DECREASED [None]
  - LETHARGY [None]
  - SUICIDE ATTEMPT [None]
  - SYNCOPE [None]
  - TACHYCARDIA [None]
